FAERS Safety Report 20628773 (Version 5)
Quarter: 2022Q2

REPORT INFORMATION
  Report Type: Report from Study
  Country: US (occurrence: US)
  Receive Date: 20220323
  Receipt Date: 20220623
  Transmission Date: 20220721
  Serious: Yes (Life-Threatening, Hospitalization, Other)
  Sender: FDA-Public Use
  Company Number: US-GLAXOSMITHKLINE-US2022GSK047819

PATIENT

DRUGS (3)
  1. SOTROVIMAB [Suspect]
     Active Substance: SOTROVIMAB
     Indication: COVID-19
     Dosage: UNK, SINGLE
     Dates: start: 20211130, end: 20211130
  2. WELLBUTRIN XL [Suspect]
     Active Substance: BUPROPION HYDROCHLORIDE
     Indication: Product used for unknown indication
     Dosage: UNK
     Dates: start: 20210827
  3. ASPIRIN [Suspect]
     Active Substance: ASPIRIN
     Indication: Product used for unknown indication
     Dosage: UNK UNK, QD
     Dates: start: 20211216

REACTIONS (25)
  - Pre-eclampsia [Recovering/Resolving]
  - Choking [Unknown]
  - Vocal cord disorder [Unknown]
  - Protein urine present [Unknown]
  - Morning sickness [Unknown]
  - Gestational hypertension [Recovering/Resolving]
  - Fatigue [Recovered/Resolved]
  - Depression [Not Recovered/Not Resolved]
  - Muscle tightness [Unknown]
  - Hypoaesthesia [Unknown]
  - Irritability [Unknown]
  - Neuralgia [Unknown]
  - Mood swings [Unknown]
  - Anger [Not Recovered/Not Resolved]
  - Crying [Not Recovered/Not Resolved]
  - Asthenia [Not Recovered/Not Resolved]
  - Dyspepsia [Unknown]
  - Decreased appetite [Unknown]
  - Confusional state [Unknown]
  - Abdominal pain upper [Unknown]
  - Headache [Unknown]
  - Dehydration [Unknown]
  - Retching [Unknown]
  - Live birth [Unknown]
  - Maternal exposure during pregnancy [Recovered/Resolved]

NARRATIVE: CASE EVENT DATE: 20211130
